FAERS Safety Report 8391004-5 (Version None)
Quarter: 2012Q2

REPORT INFORMATION
  Report Type: 
  Country: None (occurrence: None)
  Receive Date: 20120529
  Receipt Date: 20120522
  Transmission Date: 20120825
  Serious: Yes (Other)
  Sender: FDA-Public Use
  Company Number: US-JNJFOC-20110911304

PATIENT
  Sex: Female
  Weight: 79.83 kg

DRUGS (20)
  1. ELMIRON [Suspect]
     Route: 048
     Dates: start: 20110201, end: 20110922
  2. VIRAMUNE [Concomitant]
     Indication: HIV INFECTION
     Route: 048
     Dates: start: 20030101
  3. LIPITOR [Concomitant]
     Indication: BLOOD CHOLESTEROL
     Route: 048
     Dates: start: 20020101
  4. PLAVIX [Concomitant]
     Indication: THROMBOSIS
     Route: 048
     Dates: start: 20030101
  5. ELMIRON [Suspect]
     Route: 048
     Dates: start: 20111001
  6. ELMIRON [Suspect]
     Route: 048
     Dates: start: 20111211
  7. PRILOSEC [Concomitant]
     Indication: DYSPEPSIA
     Route: 048
  8. ELMIRON [Suspect]
     Route: 048
     Dates: start: 20111001, end: 20111211
  9. ELMIRON [Suspect]
     Route: 048
     Dates: start: 20100101, end: 20100101
  10. PREMARIN [Concomitant]
     Indication: HOT FLUSH
     Route: 048
     Dates: start: 19800101
  11. ASPIRIN [Concomitant]
     Indication: THROMBOSIS
     Route: 048
     Dates: start: 20090101
  12. LEVOTHYROXINE SODIUM [Concomitant]
     Indication: THYROID DISORDER
     Route: 048
     Dates: start: 20020101
  13. ELMIRON [Suspect]
     Route: 048
     Dates: start: 20110601, end: 20110922
  14. ELMIRON [Suspect]
     Route: 048
     Dates: end: 20120127
  15. ELMIRON [Suspect]
     Route: 048
     Dates: start: 20110501
  16. PRILOSEC [Concomitant]
     Indication: GASTRIC DISORDER
     Route: 048
  17. TRUVADA [Concomitant]
     Indication: HIV INFECTION
     Route: 048
     Dates: start: 20030101
  18. ATENOLOL [Concomitant]
     Indication: HEART RATE DECREASED
     Route: 048
     Dates: start: 20100101
  19. ELMIRON [Suspect]
     Indication: CYSTITIS INTERSTITIAL
     Route: 048
     Dates: start: 20110101, end: 20110601
  20. ELMIRON [Suspect]
     Route: 048
     Dates: start: 20100201, end: 20100401

REACTIONS (22)
  - MALAISE [None]
  - NAUSEA [None]
  - FATIGUE [None]
  - ABNORMAL LOSS OF WEIGHT [None]
  - BLADDER DISORDER [None]
  - URINARY TRACT INFECTION [None]
  - FEELING ABNORMAL [None]
  - HAEMATOCHEZIA [None]
  - PRODUCT QUALITY ISSUE [None]
  - DYSGEUSIA [None]
  - TREATMENT NONCOMPLIANCE [None]
  - DYSURIA [None]
  - AGEUSIA [None]
  - APPETITE DISORDER [None]
  - INSOMNIA [None]
  - INAPPROPRIATE SCHEDULE OF DRUG ADMINISTRATION [None]
  - ABDOMINAL PAIN UPPER [None]
  - OVERDOSE [None]
  - DRUG INEFFECTIVE [None]
  - FAECES DISCOLOURED [None]
  - PAIN [None]
  - MICTURITION DISORDER [None]
